FAERS Safety Report 18609700 (Version 1)
Quarter: 2020Q4

REPORT INFORMATION
  Report Type: Spontaneous
  Country: SE (occurrence: SE)
  Receive Date: 20201214
  Receipt Date: 20201214
  Transmission Date: 20210114
  Serious: Yes (Other)
  Sender: FDA-Public Use
  Company Number: SE-TEVA-2020-SE-1857433

PATIENT
  Age: 52 Year
  Sex: Female

DRUGS (14)
  1. DIVISUN [Concomitant]
     Active Substance: CHOLECALCIFEROL
  2. BETOLVEX [Concomitant]
  3. LISINOPRIL. [Concomitant]
     Active Substance: LISINOPRIL
  4. METFORMIN [Concomitant]
     Active Substance: METFORMIN HYDROCHLORIDE
  5. ALVEDON FORTE [Concomitant]
     Active Substance: ACETAMINOPHEN
  6. FUNGORAL [Concomitant]
     Active Substance: KETOCONAZOLE
  7. AMLODIPINE [Suspect]
     Active Substance: AMLODIPINE BESYLATE
     Indication: HYPERTENSION
     Dosage: 5 MG
     Route: 048
     Dates: start: 20201015, end: 20201016
  8. ATORVASTATIN [Concomitant]
     Active Substance: ATORVASTATIN
  9. MINIDERM [Concomitant]
  10. LIVOSTIN [Concomitant]
     Active Substance: LEVOCABASTINE HYDROCHLORIDE
     Dosage: IF NECESSARY
  11. LANTUS (SOLOSTAR) [Concomitant]
  12. MOMETASONE [Concomitant]
     Active Substance: MOMETASONE
  13. JANUVIA [Concomitant]
     Active Substance: SITAGLIPTIN PHOSPHATE
  14. OMEPRAZOLE. [Concomitant]
     Active Substance: OMEPRAZOLE

REACTIONS (2)
  - Swelling face [Recovered/Resolved]
  - Nausea [Recovered/Resolved]

NARRATIVE: CASE EVENT DATE: 20201015
